FAERS Safety Report 4765548-9 (Version None)
Quarter: 2005Q3

REPORT INFORMATION
  Report Type: 
  Country: None (occurrence: None)
  Receive Date: 20050908
  Receipt Date: 20050908
  Transmission Date: 20060218
  Serious: Yes (Life-Threatening)
  Sender: FDA-Public Use
  Company Number: None

PATIENT
  Age: 84 Year
  Sex: Female

DRUGS (2)
  1. PROTAMINE [Suspect]
     Indication: ARTERIOVENOUS SHUNT OPERATION
  2. PROTAMINE [Suspect]
     Indication: THROMBECTOMY

REACTIONS (7)
  - ATRIOVENTRICULAR BLOCK COMPLETE [None]
  - CARDIAC ARREST [None]
  - HYPOTENSION [None]
  - PROCEDURAL COMPLICATION [None]
  - SEPSIS [None]
  - URINARY TRACT INFECTION ENTEROCOCCAL [None]
  - VENTRICULAR FIBRILLATION [None]
